FAERS Safety Report 10142128 (Version 1)
Quarter: 2014Q2

REPORT INFORMATION
  Report Type: Report from Study
  Country: US (occurrence: US)
  Receive Date: 20140429
  Receipt Date: 20140429
  Transmission Date: 20141212
  Serious: Yes (Other)
  Sender: FDA-Public Use
  Company Number: PHEH2014US008482

PATIENT
  Age: 61 Year
  Sex: Male

DRUGS (1)
  1. FANAPT [Suspect]
     Indication: BIPOLAR I DISORDER
     Dosage: 6 MG, UNK
     Route: 048

REACTIONS (1)
  - Hip fracture [Unknown]
